FAERS Safety Report 7909484-5 (Version None)
Quarter: 2011Q4

REPORT INFORMATION
  Report Type: 
  Country: None (occurrence: None)
  Receive Date: 20111111
  Receipt Date: 20111102
  Transmission Date: 20120403
  Serious: Yes (Hospitalization)
  Sender: FDA-Public Use
  Company Number: US-BRISTOL-MYERS SQUIBB COMPANY-16210577

PATIENT
  Age: 9 Year
  Sex: Female
  Weight: 39 kg

DRUGS (1)
  1. ABILIFY [Suspect]
     Dosage: FROM 05OCT2011,2MG TWICE DAILY
     Dates: start: 20110921, end: 20111021

REACTIONS (1)
  - CEREBROVASCULAR ACCIDENT [None]
